FAERS Safety Report 17749093 (Version 5)
Quarter: 2021Q1

REPORT INFORMATION
  Report Type: Spontaneous
  Country: US (occurrence: US)
  Receive Date: 20200505
  Receipt Date: 20210211
  Transmission Date: 20210419
  Serious: Yes (Other)
  Sender: FDA-Public Use
  Company Number: US-GILEAD-2020-0464207

PATIENT
  Age: 41 Year
  Sex: Male

DRUGS (1)
  1. TRUVADA [Suspect]
     Active Substance: EMTRICITABINE\TENOFOVIR DISOPROXIL FUMARATE
     Indication: PROPHYLAXIS AGAINST HIV INFECTION
     Dosage: UNK
     Route: 065
     Dates: start: 20170101

REACTIONS (6)
  - Osteonecrosis [Unknown]
  - Bone loss [Unknown]
  - Multiple fractures [Unknown]
  - Bone density decreased [Not Recovered/Not Resolved]
  - Bone density decreased [Unknown]
  - Skeletal injury [Unknown]

NARRATIVE: CASE EVENT DATE: 20190801
